FAERS Safety Report 6878997-X (Version None)
Quarter: 2010Q3

REPORT INFORMATION
  Report Type: 
  Country: None (occurrence: None)
  Receive Date: 20100728
  Receipt Date: 20100625
  Transmission Date: 20110219
  Serious: No
  Sender: FDA-Public Use
  Company Number: US-BAYER-201027169NA

PATIENT
  Sex: Male

DRUGS (1)
  1. ULTRAVIST 300 [Suspect]
     Indication: PRODUCT USED FOR UNKNOWN INDICATION

REACTIONS (2)
  - NASAL CONGESTION [None]
  - OROPHARYNGEAL DISCOMFORT [None]
